FAERS Safety Report 23420282 (Version 2)
Quarter: 2024Q1

REPORT INFORMATION
  Report Type: Report from Study
  Country: BR (occurrence: BR)
  Receive Date: 20240119
  Receipt Date: 20240131
  Transmission Date: 20240409
  Serious: Yes (Hospitalization, Other)
  Sender: FDA-Public Use
  Company Number: BR-KYOWAKIRIN-2024KK000668

PATIENT

DRUGS (2)
  1. BUROSUMAB [Suspect]
     Active Substance: BUROSUMAB
     Indication: Rickets
     Dosage: 20 MG, 1X/2 WEEKS
     Route: 058
  2. BUROSUMAB [Suspect]
     Active Substance: BUROSUMAB
     Dosage: 20 MG, 1X/2 WEEKS
     Route: 058
     Dates: start: 20231225

REACTIONS (3)
  - Lower limb fracture [Unknown]
  - Limb operation [Unknown]
  - Product use in unapproved indication [Unknown]

NARRATIVE: CASE EVENT DATE: 20240110
